FAERS Safety Report 23665142 (Version 7)
Quarter: 2024Q2

REPORT INFORMATION
  Report Type: Spontaneous
  Country: AR (occurrence: AR)
  Receive Date: 20240322
  Receipt Date: 20240625
  Transmission Date: 20240716
  Serious: Yes (Hospitalization, Other)
  Sender: FDA-Public Use
  Company Number: AR-BIOMARINAP-AR-2024-156726

PATIENT

DRUGS (1)
  1. NAGLAZYME [Suspect]
     Active Substance: GALSULFASE
     Indication: Mucopolysaccharidosis VI
     Dosage: UNK, QW
     Route: 042
     Dates: start: 20171101

REACTIONS (10)
  - Spinal cord compression [Unknown]
  - Spinal cord operation [Recovering/Resolving]
  - Patient-device incompatibility [Unknown]
  - Haemorrhage [Unknown]
  - Oxygen saturation decreased [Not Recovered/Not Resolved]
  - Dysphonia [Unknown]
  - Tendon disorder [Unknown]
  - Medical device site erythema [Recovering/Resolving]
  - Post procedural discharge [Recovering/Resolving]
  - Wrong technique in device usage process [Recovering/Resolving]

NARRATIVE: CASE EVENT DATE: 20240401
